FAERS Safety Report 9433320 (Version 2)
Quarter: 2013Q3

REPORT INFORMATION
  Report Type: Report from Study
  Country: CA (occurrence: CA)
  Receive Date: 20130731
  Receipt Date: 20130921
  Transmission Date: 20140515
  Serious: Yes (Hospitalization, Other)
  Sender: FDA-Public Use
  Company Number: CA-BRISTOL-MYERS SQUIBB COMPANY-18917120

PATIENT
  Age: 70 Year
  Sex: Male

DRUGS (10)
  1. ORENCIA [Suspect]
     Indication: RHEUMATOID ARTHRITIS
     Dosage: 1 DF: 1000 UNIT NOS.?3A80545?LAST DOSE:12SEP13
     Dates: start: 20130102
  2. CRESTOR [Concomitant]
  3. NAPROXEN [Concomitant]
  4. VITAMIN D [Concomitant]
  5. FOLIC ACID [Concomitant]
  6. METHOTREXATE [Concomitant]
  7. PREDNISONE [Concomitant]
  8. COVERSYL [Concomitant]
  9. HUMULIN [Concomitant]
  10. HUMALOG [Concomitant]

REACTIONS (8)
  - Cystitis [Unknown]
  - Blood pressure decreased [Unknown]
  - Local swelling [Unknown]
  - Aortic aneurysm [Not Recovered/Not Resolved]
  - Urinary bladder polyp [Unknown]
  - Urinary tract infection [Unknown]
  - Fatigue [Unknown]
  - Pain in extremity [Not Recovered/Not Resolved]
